FAERS Safety Report 10446725 (Version 1)
Quarter: 2014Q3

REPORT INFORMATION
  Report Type: Spontaneous
  Country: US (occurrence: None)
  Receive Date: 20140910
  Receipt Date: 20140910
  Transmission Date: 20150326
  Serious: Yes (Other)
  Sender: FDA-Public Use
  Company Number: None

PATIENT
  Age: 38 Year
  Sex: Female
  Weight: 122.47 kg

DRUGS (1)
  1. ACTEMRA [Suspect]
     Active Substance: TOCILIZUMAB
     Indication: RHEUMATOID ARTHRITIS
     Dosage: 1 SYRINGE, ONCE WEEKLY, GIVEN INTO/UNDER THE SKIN
     Dates: start: 20140505, end: 20140818

REACTIONS (4)
  - Dyskinesia [None]
  - Impaired driving ability [None]
  - Blepharospasm [None]
  - Muscle twitching [None]
